FAERS Safety Report 6992898-8 (Version None)
Quarter: 2010Q3

REPORT INFORMATION
  Report Type: 
  Country: None (occurrence: None)
  Receive Date: 20100917
  Receipt Date: 20100909
  Transmission Date: 20110219
  Serious: Yes (Hospitalization)
  Sender: FDA-Public Use
  Company Number: GXKR2010CI09439

PATIENT
  Age: 41 Year
  Sex: Male

DRUGS (4)
  1. ISONIAZID [Suspect]
     Indication: PULMONARY TUBERCULOSIS
     Dosage: UNK
     Route: 065
     Dates: start: 20060805
  2. PYRAZINAMIDE [Suspect]
     Indication: PULMONARY TUBERCULOSIS
     Dosage: UNK
     Route: 065
     Dates: start: 20060805
  3. ETHAMBUTOL (NGX) [Suspect]
     Indication: PULMONARY TUBERCULOSIS
     Dosage: UNK
     Route: 065
     Dates: start: 20060805
  4. RIFAMPICIN (NGX) [Suspect]
     Indication: PULMONARY TUBERCULOSIS
     Dosage: UNK
     Route: 065
     Dates: start: 20060805

REACTIONS (8)
  - ANAEMIA [None]
  - DEHYDRATION [None]
  - GENERAL PHYSICAL HEALTH DETERIORATION [None]
  - HYPONATRAEMIA [None]
  - ORAL CANDIDIASIS [None]
  - PYREXIA [None]
  - SKIN LESION [None]
  - TOXIC EPIDERMAL NECROLYSIS [None]
